FAERS Safety Report 7779074-6 (Version None)
Quarter: 2011Q3

REPORT INFORMATION
  Report Type: 
  Country: None (occurrence: None)
  Receive Date: 20110926
  Receipt Date: 20110913
  Transmission Date: 20111222
  Serious: Yes (Life-Threatening)
  Sender: FDA-Public Use
  Company Number: IE-MYLANLABS-2011S1019567

PATIENT
  Age: 4 Year
  Sex: Female

DRUGS (8)
  1. MIDAZOLAM HCL [Suspect]
     Route: 065
  2. EPINEPHRINE [Concomitant]
     Route: 065
  3. FENTANYL [Suspect]
     Route: 065
  4. ROCURONIUM BROMIDE [Suspect]
     Indication: HYPOTONIA
     Route: 065
  5. THIOPENTAL SODIUM [Suspect]
     Indication: INDUCTION OF ANAESTHESIA
     Route: 065
  6. LORAZEPAM [Suspect]
     Route: 065
  7. PANCURONIUM BROMIDE [Suspect]
     Indication: HYPOTONIA
     Route: 065
  8. DOPAMINE HCL [Concomitant]
     Route: 065

REACTIONS (3)
  - BRADYCARDIA [None]
  - HYPOTENSION [None]
  - CARDIAC ARREST [None]
